FAERS Safety Report 6405717-5 (Version None)
Quarter: 2009Q4

REPORT INFORMATION
  Report Type: 
  Country: None (occurrence: None)
  Receive Date: 20091016
  Receipt Date: 20091016
  Transmission Date: 20100525
  Serious: Yes (Other)
  Sender: FDA-Public Use
  Company Number: None

PATIENT
  Age: 67 Year
  Sex: Female
  Weight: 90.7194 kg

DRUGS (1)
  1. FLUTICASONE PROPIONATE [Suspect]
     Indication: SEASONAL ALLERGY
     Dosage: 2 SPRAYS PER NOSTRIL DAILY AS NEED NASAL
     Route: 045
     Dates: start: 20090707, end: 20090722

REACTIONS (10)
  - DRY MOUTH [None]
  - DYSPHAGIA [None]
  - EATING DISORDER [None]
  - FOREIGN BODY [None]
  - INCREASED UPPER AIRWAY SECRETION [None]
  - PAIN IN JAW [None]
  - PRURITUS [None]
  - SPEECH DISORDER [None]
  - THROAT TIGHTNESS [None]
  - WEIGHT DECREASED [None]
